FAERS Safety Report 5695049-5 (Version None)
Quarter: 2008Q2

REPORT INFORMATION
  Report Type: 
  Country: None (occurrence: None)
  Receive Date: 20080404
  Receipt Date: 20080321
  Transmission Date: 20081010
  Serious: Yes (Hospitalization)
  Sender: FDA-Public Use
  Company Number: JP-GENENTECH-257104

PATIENT
  Sex: Male
  Weight: 66 kg

DRUGS (4)
  1. AVASTIN [Suspect]
     Indication: RECTAL CANCER
     Dosage: 5 MG/KG, Q2W
     Route: 041
     Dates: start: 20080207
  2. IRINOTECAN HYDROCHLORIDE [Concomitant]
     Indication: RECTAL CANCER
     Dates: start: 20080207
  3. FLUOROURACIL [Concomitant]
     Indication: RECTAL CANCER
     Dates: start: 20080207
  4. ISOVORIN [Concomitant]
     Indication: RECTAL CANCER
     Dates: start: 20080207

REACTIONS (1)
  - NECROTISING FASCIITIS [None]
